FAERS Safety Report 13093102 (Version 1)
Quarter: 2017Q1

REPORT INFORMATION
  Report Type: Spontaneous
  Country: None (occurrence: FR)
  Receive Date: 20170106
  Receipt Date: 20170106
  Transmission Date: 20170428
  Serious: Yes (Hospitalization)
  Sender: FDA-Public Use
  Company Number: FR-MEDAC PHARMA, INC.-1061605

PATIENT
  Age: 59 Year

DRUGS (8)
  1. ASPIRIN. [Concomitant]
     Active Substance: ASPIRIN
  2. LEVEMIR [Concomitant]
     Active Substance: INSULIN DETEMIR
  3. TOCILIZUMAB [Suspect]
     Active Substance: TOCILIZUMAB
  4. METOJECT [Suspect]
     Active Substance: METHOTREXATE SODIUM
     Indication: RHEUMATOID ARTHRITIS
     Dates: start: 201011, end: 201310
  5. CRESTOR [Concomitant]
     Active Substance: ROSUVASTATIN CALCIUM
  6. PERINDOPRIL ERBUMINE. [Concomitant]
     Active Substance: PERINDOPRIL ERBUMINE
  7. HUMALOG [Concomitant]
     Active Substance: INSULIN LISPRO
  8. IVABRADINE [Concomitant]
     Active Substance: IVABRADINE

REACTIONS (1)
  - Refractory anaemia with an excess of blasts [Recovered/Resolved]
